FAERS Safety Report 8144937-9 (Version None)
Quarter: 2012Q1

REPORT INFORMATION
  Report Type: 
  Country: None (occurrence: None)
  Receive Date: 20120217
  Receipt Date: 20120206
  Transmission Date: 20120608
  Serious: Yes (Other)
  Sender: FDA-Public Use
  Company Number: US-MERCK-1202USA00958

PATIENT
  Age: 46 Year
  Sex: Male
  Weight: 94 kg

DRUGS (8)
  1. SUMATRIPTAN SUCCINATE (IMITREX) [Suspect]
     Indication: HEADACHE
     Route: 065
  2. ZOMIG [Suspect]
     Indication: MIGRAINE
     Route: 065
  3. RELPAX [Suspect]
     Indication: HEADACHE
     Route: 048
  4. MAXALT [Suspect]
     Indication: MIGRAINE
     Route: 048
  5. SUMATRIPTAN SUCCINATE (IMITREX) [Suspect]
     Indication: MIGRAINE
     Route: 065
  6. RELPAX [Suspect]
     Indication: MIGRAINE
     Route: 048
  7. MAXALT [Suspect]
     Indication: HEADACHE
     Route: 048
  8. ZOMIG [Suspect]
     Indication: HEADACHE
     Route: 065

REACTIONS (4)
  - MULTIPLE SCLEROSIS [None]
  - CHEST DISCOMFORT [None]
  - DRUG INEFFECTIVE [None]
  - ADVERSE DRUG REACTION [None]
